FAERS Safety Report 16740244 (Version 1)
Quarter: 2019Q3

REPORT INFORMATION
  Report Type: Spontaneous
  Country: US (occurrence: US)
  Receive Date: 20190826
  Receipt Date: 20190826
  Transmission Date: 20191005
  Serious: No
  Sender: FDA-Public Use
  Company Number: US-GLAXOSMITHKLINE-US2019153524

PATIENT
  Age: 54 Year
  Sex: Female

DRUGS (1)
  1. NICODERM CQ [Suspect]
     Active Substance: NICOTINE
     Indication: SMOKING CESSATION THERAPY
     Dosage: 14 MG, QD
     Route: 061
     Dates: start: 201907

REACTIONS (4)
  - Application site urticaria [Recovered/Resolved]
  - Wrong technique in product usage process [Unknown]
  - Hiccups [Recovered/Resolved]
  - Application site reaction [Recovered/Resolved]
